FAERS Safety Report 4372607-1 (Version None)
Quarter: 2004Q2

REPORT INFORMATION
  Report Type: 
  Country: None (occurrence: None)
  Receive Date: 20040608
  Receipt Date: 20040528
  Transmission Date: 20050107
  Serious: Yes (Hospitalization)
  Sender: FDA-Public Use
  Company Number: 200415560GDDC

PATIENT
  Age: 59 Year
  Sex: Female

DRUGS (3)
  1. KETEK [Suspect]
     Indication: BRONCHITIS
     Route: 048
     Dates: start: 20040511, end: 20040515
  2. KETEK [Suspect]
     Indication: EAR INFECTION
     Route: 048
     Dates: start: 20040511, end: 20040515
  3. KETEK [Suspect]
     Indication: SINUSITIS
     Route: 048
     Dates: start: 20040511, end: 20040515

REACTIONS (6)
  - ARRHYTHMIA [None]
  - BLOOD PRESSURE INCREASED [None]
  - CONDITION AGGRAVATED [None]
  - FATIGUE [None]
  - HEADACHE [None]
  - VISION BLURRED [None]
